FAERS Safety Report 4834675-X (Version None)
Quarter: 2005Q4

REPORT INFORMATION
  Report Type: 
  Country: None (occurrence: None)
  Receive Date: 20051122
  Receipt Date: 20051110
  Transmission Date: 20060501
  Serious: Yes (Hospitalization)
  Sender: FDA-Public Use
  Company Number: FR-GLAXOSMITHKLINE-B0400598A

PATIENT
  Age: 76 Year
  Sex: Female

DRUGS (8)
  1. ALKERAN [Suspect]
     Indication: MULTIPLE MYELOMA
     Dosage: 2MG SIX TIMES PER DAY
     Route: 048
     Dates: start: 20050622, end: 20050626
  2. PIRACETAM [Concomitant]
     Dosage: 800MG TWICE PER DAY
     Route: 048
     Dates: start: 20050602
  3. DI ANTALVIC [Concomitant]
     Route: 048
     Dates: start: 20050413
  4. SOLU-MEDROL [Concomitant]
     Indication: MULTIPLE MYELOMA
     Dosage: 20MG TWICE PER DAY
     Route: 048
     Dates: start: 20050622, end: 20050626
  5. CALPEROS [Concomitant]
     Route: 048
     Dates: start: 20050413
  6. LANZOR [Concomitant]
     Dosage: 30MG PER DAY
     Route: 048
     Dates: start: 20050624
  7. CHONDROSULF [Concomitant]
     Dosage: 400MG THREE TIMES PER DAY
     Route: 065
     Dates: start: 20050413
  8. FUNGIZONE [Concomitant]
     Route: 002
     Dates: start: 20050705

REACTIONS (5)
  - ASTHENIA [None]
  - GENERAL PHYSICAL HEALTH DETERIORATION [None]
  - HAEMATOMA [None]
  - PANCYTOPENIA [None]
  - PETECHIAE [None]
